FAERS Safety Report 4524603-9 (Version None)
Quarter: 2004Q4

REPORT INFORMATION
  Report Type: 
  Country: None (occurrence: None)
  Receive Date: 20041117
  Receipt Date: 20040902
  Transmission Date: 20050328
  Serious: Yes (Hospitalization)
  Sender: FDA-Public Use
  Company Number: US-JNJFOC-20040901306

PATIENT
  Age: 75 Year
  Sex: Female
  Weight: 99.7913 kg

DRUGS (2)
  1. LEVAQUIN [Suspect]
     Indication: BRONCHITIS
     Dosage: 500 MG
  2. HUMULOG (INSULIN LISPRO) [Concomitant]

REACTIONS (1)
  - BLOOD CREATININE INCREASED [None]
